FAERS Safety Report 11247823 (Version 1)
Quarter: 2015Q3

REPORT INFORMATION
  Report Type: Spontaneous
  Country: US (occurrence: None)
  Receive Date: 20150707
  Receipt Date: 20150707
  Transmission Date: 20151125
  Serious: No
  Sender: FDA-Public Use
  Company Number: None

PATIENT
  Age: 81 Year
  Sex: Female
  Weight: 58.51 kg

DRUGS (6)
  1. RESTASIS [Concomitant]
     Active Substance: CYCLOSPORINE
  2. PROLIA [Suspect]
     Active Substance: DENOSUMAB
     Indication: OSTEOPOROSIS
     Dosage: 1 INJECTION TWICE A YEAR
     Dates: start: 20140707
  3. BIOTIN [Concomitant]
     Active Substance: BIOTIN
  4. VIT. D [Concomitant]
  5. ADVAIR HFA [Concomitant]
     Active Substance: FLUTICASONE PROPIONATE\SALMETEROL XINAFOATE
  6. FISH OIL [Concomitant]
     Active Substance: FISH OIL

REACTIONS (5)
  - Pain in extremity [None]
  - Alopecia [None]
  - Fluid retention [None]
  - Dizziness [None]
  - Conjunctivitis [None]

NARRATIVE: CASE EVENT DATE: 201407
